FAERS Safety Report 7347199-5 (Version None)
Quarter: 2011Q1

REPORT INFORMATION
  Report Type: 
  Country: None (occurrence: None)
  Receive Date: 20110311
  Receipt Date: 20110307
  Transmission Date: 20110831
  Serious: Yes (Other)
  Sender: FDA-Public Use
  Company Number: JP-PFIZER INC-2010179115

PATIENT
  Age: 82 Year
  Sex: Female

DRUGS (2)
  1. DIFLUCAN [Suspect]
     Indication: EYE INFECTION FUNGAL
     Dosage: 100 MG/DAY
     Route: 048
     Dates: start: 20101118
  2. WARFARIN [Concomitant]
     Dosage: UNK

REACTIONS (1)
  - RENAL IMPAIRMENT [None]
